FAERS Safety Report 21579633 (Version 1)
Quarter: 2022Q4

REPORT INFORMATION
  Report Type: Spontaneous
  Country: US (occurrence: None)
  Receive Date: 20221110
  Receipt Date: 20221110
  Transmission Date: 20230113
  Serious: No
  Sender: FDA-Public Use
  Company Number: None

PATIENT
  Age: 39 Year
  Sex: Female
  Weight: 71.1 kg

DRUGS (2)
  1. PHENAZOPYRIDINE [Suspect]
     Active Substance: PHENAZOPYRIDINE
     Indication: Ureteroscopy
     Dosage: OTHER QUANTITY : 9 TABLET(S);?FREQUENCY : 3 TIMES A DAY;?
     Route: 048
     Dates: start: 20221110
  2. Wellbutrin 300mg once daily [Concomitant]

REACTIONS (2)
  - Flushing [None]
  - Feeling hot [None]

NARRATIVE: CASE EVENT DATE: 20221110
